FAERS Safety Report 16595881 (Version 1)
Quarter: 2019Q3

REPORT INFORMATION
  Report Type: Spontaneous
  Country: RS (occurrence: RS)
  Receive Date: 20190719
  Receipt Date: 20190719
  Transmission Date: 20191004
  Serious: Yes (Disabling, Other)
  Sender: FDA-Public Use
  Company Number: RS-ASTRAZENECA-2019SF02405

PATIENT
  Sex: Male

DRUGS (3)
  1. BRILIQUE [Suspect]
     Active Substance: TICAGRELOR
     Route: 048
     Dates: start: 20190703
  2. ASPIRIN. [Concomitant]
     Active Substance: ASPIRIN
  3. BRILIQUE [Suspect]
     Active Substance: TICAGRELOR
     Dosage: THEN CONTINUED WITH 1 TABLET TWICE A DAY
     Route: 048
     Dates: start: 20190703

REACTIONS (3)
  - Deafness unilateral [Not Recovered/Not Resolved]
  - Vertigo [Not Recovered/Not Resolved]
  - Dyspnoea [Unknown]

NARRATIVE: CASE EVENT DATE: 20190703
